FAERS Safety Report 4702231-X (Version None)
Quarter: 2005Q2

REPORT INFORMATION
  Report Type: 
  Country: None (occurrence: None)
  Receive Date: 20050624
  Receipt Date: 20050225
  Transmission Date: 20051028
  Serious: No
  Sender: FDA-Public Use
  Company Number: 2005BI004422

PATIENT
  Sex: Female

DRUGS (2)
  1. NATALIZUMAB [Suspect]
     Indication: MULTIPLE SCLEROSIS
     Dosage: 300 MG;QM;IV
     Route: 042
     Dates: start: 20050221
  2. NEURONTIN [Concomitant]

REACTIONS (4)
  - AGITATION [None]
  - FEELING JITTERY [None]
  - RESTLESSNESS [None]
  - SLEEP DISORDER [None]
